FAERS Safety Report 10960811 (Version 3)
Quarter: 2015Q2

REPORT INFORMATION
  Report Type: Spontaneous
  Country: US (occurrence: US)
  Receive Date: 20150327
  Receipt Date: 20150501
  Transmission Date: 20150821
  Serious: Yes (Hospitalization, Other)
  Sender: FDA-Public Use
  Company Number: US-PFIZER INC-2015104679

PATIENT
  Age: 90 Year
  Sex: Female

DRUGS (4)
  1. CARDIZEM [Concomitant]
     Active Substance: DILTIAZEM HYDROCHLORIDE
     Indication: ARRHYTHMIA
     Dosage: 120 MG, 2X/DAY
  2. TIKOSYN [Suspect]
     Active Substance: DOFETILIDE
     Indication: HEART RATE INCREASED
     Dosage: 250 MG, UNK
     Dates: start: 2012
  3. TIKOSYN [Suspect]
     Active Substance: DOFETILIDE
     Indication: ARRHYTHMIA
  4. DILIZEM [Concomitant]
     Indication: ARRHYTHMIA
     Dosage: 120 MG, 2X/DAY

REACTIONS (1)
  - Arrhythmia [Recovered/Resolved]
